FAERS Safety Report 8321911 (Version 4)
Quarter: 2014Q4

REPORT INFORMATION
  Report Type: Spontaneous
  Country: JP (occurrence: JP)
  Receive Date: 20120104
  Receipt Date: 20141202
  Transmission Date: 20150529
  Serious: Yes (Hospitalization, Other)
  Sender: FDA-Public Use
  Company Number: GB-GILEAD-2011-0048323

PATIENT
  Age: 73 Year
  Sex: Male

DRUGS (9)
  1. URSO [Concomitant]
     Active Substance: URSODIOL
     Indication: PRODUCT USED FOR UNKNOWN INDICATION
     Dosage: 100 MG, TID
     Route: 048
     Dates: start: 20040607
  2. ZEFIX [Concomitant]
     Active Substance: LAMIVUDINE
     Indication: HEPATITIS B
     Dosage: 10 MG, QD
     Route: 048
     Dates: start: 20040816
  3. NEO-MINOPHAGEN-C [Concomitant]
     Active Substance: AMMONIUM CATION\GLYCYRRHIZIN
     Dosage: UNK, Q3WK
     Dates: start: 20040607
  4. HEPSERA [Suspect]
     Active Substance: ADEFOVIR DIPIVOXIL
     Dosage: UNK
     Route: 048
     Dates: start: 20050425, end: 20081217
  5. HEPSERA [Suspect]
     Active Substance: ADEFOVIR DIPIVOXIL
     Indication: CHRONIC HEPATITIS B
     Dosage: UNK
     Route: 048
     Dates: start: 20111208
  6. ALFAROL [Concomitant]
     Active Substance: ALFACALCIDOL
     Indication: PRODUCT USED FOR UNKNOWN INDICATION
     Dosage: 1 ?G, QD
     Route: 048
     Dates: start: 20110809
  7. LYRICA [Concomitant]
     Active Substance: PREGABALIN
     Indication: PRODUCT USED FOR UNKNOWN INDICATION
     Dosage: 75 MG, QD
     Route: 048
     Dates: start: 2010
  8. HEPSERA [Suspect]
     Active Substance: ADEFOVIR DIPIVOXIL
     Dosage: 100MG PER DAY
     Route: 048
     Dates: start: 20050425, end: 20111207
  9. VITAMIN D3 [Concomitant]
     Active Substance: CHOLECALCIFEROL

REACTIONS (36)
  - Renal impairment [Unknown]
  - Arthralgia [Unknown]
  - Decreased appetite [Unknown]
  - Blood glucose abnormal [Unknown]
  - Muscular weakness [Unknown]
  - Wheelchair user [Unknown]
  - Hypophosphataemia [Unknown]
  - Renal tubular acidosis [Unknown]
  - Gait disturbance [Unknown]
  - Blood calcium increased [Unknown]
  - Activities of daily living impaired [Unknown]
  - Movement disorder [Unknown]
  - Deformity thorax [Unknown]
  - Compression fracture [Unknown]
  - Weight decreased [Unknown]
  - Weight decreased [Unknown]
  - Blood creatinine increased [Unknown]
  - Blood phosphorus decreased [Unknown]
  - Fanconi syndrome acquired [Recovered/Resolved with Sequelae]
  - Osteomalacia [Unknown]
  - Blood chloride increased [Unknown]
  - Blood calcium decreased [Unknown]
  - Renal impairment [Unknown]
  - Hyperphosphatasaemia [Recovering/Resolving]
  - Renal tubular acidosis [Unknown]
  - Abasia [Unknown]
  - Body height decreased [Unknown]
  - Dysphagia [Unknown]
  - Bone density decreased [Unknown]
  - Bedridden [Unknown]
  - Pain in extremity [Unknown]
  - Spinal deformity [Unknown]
  - Blood alkaline phosphatase increased [Unknown]
  - Osteoarthritis [Unknown]
  - Performance status decreased [Unknown]
  - Pain [Unknown]

NARRATIVE: CASE EVENT DATE: 20060626
